FAERS Safety Report 7151902-7 (Version None)
Quarter: 2010Q4

REPORT INFORMATION
  Report Type: 
  Country: None (occurrence: None)
  Receive Date: 20101210
  Receipt Date: 20101130
  Transmission Date: 20110411
  Serious: Yes (Death)
  Sender: FDA-Public Use
  Company Number: JP-ABBOTT-10P-087-0690677-00

PATIENT
  Age: 77 Year
  Sex: Male

DRUGS (9)
  1. LEUPLIN SR FOR INJECTION 11.25 MG [Suspect]
     Indication: PROSTATE CANCER STAGE IV
     Route: 058
     Dates: start: 20071023, end: 20081209
  2. LEUPLIN SR FOR INJECTION 11.25 MG [Suspect]
     Route: 058
     Dates: start: 20090512, end: 20090818
  3. BICALUTAMIDE [Concomitant]
     Indication: PROSTATE CANCER STAGE IV
     Route: 048
     Dates: end: 20080115
  4. FLUTAMIDE [Concomitant]
     Indication: PROSTATE CANCER STAGE IV
     Route: 048
     Dates: end: 20091218
  5. UBRETID [Concomitant]
     Indication: NEUROGENIC BLADDER
     Route: 048
  6. HYPEN [Concomitant]
     Indication: METASTASES TO BONE
     Route: 048
     Dates: end: 20090128
  7. GASTER D [Concomitant]
     Indication: GASTRITIS PROPHYLAXIS
     Route: 048
     Dates: end: 20091215
  8. GLYCYRON [Concomitant]
     Indication: LIVER DISORDER
     Route: 048
     Dates: end: 20091215
  9. MS CONTIN [Concomitant]
     Indication: METASTASES TO BONE
     Dates: end: 20091215

REACTIONS (1)
  - PROSTATE CANCER STAGE IV [None]
